FAERS Safety Report 4511320-4 (Version None)
Quarter: 2004Q4

REPORT INFORMATION
  Report Type: 
  Country: None (occurrence: None)
  Receive Date: 20041122
  Receipt Date: 20041115
  Transmission Date: 20050328
  Serious: Yes (Disabling, Other)
  Sender: FDA-Public Use
  Company Number: 94-02-005

PATIENT
  Age: 44 Year
  Sex: Female

DRUGS (5)
  1. GARASONE [Suspect]
     Indication: EAR INFECTION
     Dosage: 3-4 DROPS QID OTIC
     Route: 001
     Dates: start: 19910717, end: 19910813
  2. CIPROFLOXACIN [Concomitant]
  3. SUPRAX [Concomitant]
  4. TRISULFAMINIC [Concomitant]
  5. TAVIST [Concomitant]

REACTIONS (35)
  - ABASIA [None]
  - ACTIVITIES OF DAILY LIVING IMPAIRED [None]
  - AGORAPHOBIA [None]
  - ANXIETY [None]
  - ATAXIA [None]
  - BALANCE DISORDER [None]
  - CONDUCTIVE DEAFNESS [None]
  - DEAFNESS NEUROSENSORY [None]
  - DEPRESSION [None]
  - DIZZINESS [None]
  - DRUG INEFFECTIVE [None]
  - DRUG TOXICITY [None]
  - EAR DISORDER [None]
  - ELECTRONYSTAGMOGRAM ABNORMAL [None]
  - FEAR [None]
  - FLASHBACK [None]
  - GAIT DISTURBANCE [None]
  - IATROGENIC INJURY [None]
  - IMPAIRED WORK ABILITY [None]
  - MENTAL DISORDER [None]
  - NIGHTMARE [None]
  - OSCILLOPSIA [None]
  - OTORRHOEA [None]
  - PANIC ATTACK [None]
  - PURULENT DISCHARGE [None]
  - RENAL FAILURE CHRONIC [None]
  - RENAL TRANSPLANT [None]
  - SENSORY DISTURBANCE [None]
  - THERAPY NON-RESPONDER [None]
  - TINNITUS [None]
  - TYMPANIC MEMBRANE PERFORATION [None]
  - VERTIGO [None]
  - VESTIBULAR DISORDER [None]
  - VESTIBULAR FUNCTION TEST ABNORMAL [None]
  - VESTIBULAR NEURONITIS [None]
